FAERS Safety Report 4323233-1 (Version None)
Quarter: 2004Q1

REPORT INFORMATION
  Report Type: 
  Country: None (occurrence: None)
  Receive Date: 20040322
  Receipt Date: 20040309
  Transmission Date: 20041129
  Serious: Yes (Death, Hospitalization)
  Sender: FDA-Public Use
  Company Number: 2004UW00605

PATIENT
  Age: 39 Year
  Sex: Female

DRUGS (16)
  1. CRESTOR [Suspect]
     Dosage: 20 MG HS PO
     Route: 048
     Dates: start: 20041024
  2. NO MATCH [Concomitant]
  3. ZYPREXA [Concomitant]
  4. ALDACTONE [Concomitant]
  5. TEGRETOL [Concomitant]
  6. HYDROXYZINE [Concomitant]
  7. COGENTIN [Concomitant]
  8. DITROPAN [Concomitant]
  9. LASIX [Concomitant]
  10. XANAX [Concomitant]
  11. PREVACID [Concomitant]
  12. NEURONTIN [Concomitant]
  13. ZANTAC [Concomitant]
  14. VICODIN [Concomitant]
  15. ALBUTEROL [Concomitant]
  16. VISTARIL [Concomitant]

REACTIONS (25)
  - CIRCULATORY COLLAPSE [None]
  - CONVULSION [None]
  - CULTURE URINE POSITIVE [None]
  - DEHYDRATION [None]
  - DIALYSIS [None]
  - DRUG INTERACTION [None]
  - DRUG LEVEL DECREASED [None]
  - DRUG SCREEN POSITIVE [None]
  - ERYTHEMA [None]
  - FALL [None]
  - GLUCOSE URINE PRESENT [None]
  - HYPERKALAEMIA [None]
  - HYPOTENSION [None]
  - MENTAL STATUS CHANGES [None]
  - METABOLIC ACIDOSIS [None]
  - NEUROLEPTIC MALIGNANT SYNDROME [None]
  - OEDEMA PERIPHERAL [None]
  - OVERDOSE [None]
  - PULSE ABSENT [None]
  - RENAL FAILURE [None]
  - RHABDOMYOLYSIS [None]
  - SEPSIS [None]
  - SPEECH DISORDER [None]
  - VASCULAR OCCLUSION [None]
  - WHITE BLOOD CELL COUNT INCREASED [None]
